FAERS Safety Report 14395403 (Version 1)
Quarter: 2018Q1

REPORT INFORMATION
  Report Type: Spontaneous
  Country: US (occurrence: US)
  Receive Date: 20180116
  Receipt Date: 20180116
  Transmission Date: 20180509
  Serious: No
  Sender: FDA-Public Use
  Company Number: US-ALLERGAN-1707027US

PATIENT
  Age: 70 Year
  Sex: Female

DRUGS (1)
  1. BOTOX [Suspect]
     Active Substance: ONABOTULINUMTOXINA
     Indication: MUSCLE RELAXANT THERAPY
     Dosage: UNK, SINGLE
     Route: 030
     Dates: start: 20170208, end: 20170208

REACTIONS (2)
  - Injection site bruising [Not Recovered/Not Resolved]
  - Off label use [Unknown]
